FAERS Safety Report 14789420 (Version 1)
Quarter: 2018Q2

REPORT INFORMATION
  Report Type: Spontaneous
  Country: US (occurrence: US)
  Receive Date: 20180423
  Receipt Date: 20180423
  Transmission Date: 20180711
  Serious: No
  Sender: FDA-Public Use
  Company Number: US-TEVA-812917ACC

PATIENT
  Sex: Female

DRUGS (1)
  1. PRAVASTATIN. [Suspect]
     Active Substance: PRAVASTATIN

REACTIONS (7)
  - Myalgia [Unknown]
  - Arthralgia [Unknown]
  - Crying [Unknown]
  - Fatigue [Unknown]
  - Pain in extremity [Unknown]
  - Breast tenderness [Unknown]
  - Axillary pain [Unknown]
